FAERS Safety Report 4704124-0 (Version None)
Quarter: 2005Q2

REPORT INFORMATION
  Report Type: 
  Country: None (occurrence: None)
  Receive Date: 20050629
  Receipt Date: 20020624
  Transmission Date: 20051028
  Serious: No
  Sender: FDA-Public Use
  Company Number: 3838

PATIENT
  Age: 75 Year
  Sex: Male

DRUGS (9)
  1. ACYCLOVIR [Suspect]
     Dosage: 150 MG
     Dates: start: 20001008, end: 20001123
  2. SERTRALINE HYDROCHLORIDE [Suspect]
     Indication: DEPRESSION
     Dosage: 50 MG
     Dates: start: 20001027, end: 20001118
  3. CLAVULANATE POTASSIUM [Suspect]
     Indication: AGRANULOCYTOSIS
     Dosage: 12.4 G
     Dates: start: 20001104, end: 20001123
  4. ACETAMINOPHEN [Concomitant]
  5. DOCUSATE SODIUM [Concomitant]
  6. FOLIC ACID [Concomitant]
  7. MULTI-VITAMINS [Concomitant]
  8. RANITIDINE [Concomitant]
  9. ALLOPURINOL [Concomitant]

REACTIONS (4)
  - ASPARTATE AMINOTRANSFERASE INCREASED [None]
  - BLOOD LACTATE DEHYDROGENASE INCREASED [None]
  - GAMMA-GLUTAMYLTRANSFERASE INCREASED [None]
  - HEPATIC FUNCTION ABNORMAL [None]
